FAERS Safety Report 25009394 (Version 1)
Quarter: 2025Q1

REPORT INFORMATION
  Report Type: Spontaneous
  Country: FR (occurrence: FR)
  Receive Date: 20250225
  Receipt Date: 20250225
  Transmission Date: 20250409
  Serious: Yes (Hospitalization)
  Sender: RANBAXY
  Company Number: FR-AFSSAPS-PA2024001697

PATIENT
  Age: 29 Year
  Sex: Female
  Weight: 37.6 kg

DRUGS (2)
  1. CIPROFLOXACIN [Suspect]
     Active Substance: CIPROFLOXACIN
     Indication: Chondritis
     Dosage: 1000 MILLIGRAM, DAILY, 500MG MORNING AND EVENING
     Route: 048
     Dates: start: 20241009, end: 20241011
  2. AUGMENTIN [Suspect]
     Active Substance: AMOXICILLIN\CLAVULANATE POTASSIUM
     Indication: Otitis externa
     Dosage: 3 GRAM, DAILY 1G 3X/D
     Route: 048
     Dates: start: 20241002, end: 20241011

REACTIONS (1)
  - Pancreatitis [Recovering/Resolving]

NARRATIVE: CASE EVENT DATE: 20241011
